FAERS Safety Report 20058830 (Version 1)
Quarter: 2021Q4

REPORT INFORMATION
  Report Type: Spontaneous
  Country: US (occurrence: US)
  Receive Date: 20211111
  Receipt Date: 20211111
  Transmission Date: 20220303
  Serious: Yes (Death)
  Sender: FDA-Public Use
  Company Number: US-TEVA-2021-US-1975071

PATIENT
  Age: 15 Year
  Sex: Male

DRUGS (3)
  1. NOREPINEPHRINE [Suspect]
     Active Substance: NOREPINEPHRINE
     Indication: Toxicity to various agents
     Route: 065
  2. DIPHENHYDRAMINE [Suspect]
     Active Substance: DIPHENHYDRAMINE
     Indication: Product used for unknown indication
     Route: 065
  3. SODIUM BICARBONATE [Suspect]
     Active Substance: SODIUM BICARBONATE
     Indication: Toxicity to various agents
     Route: 065

REACTIONS (13)
  - Ventricular tachycardia [Fatal]
  - Toxicity to various agents [Fatal]
  - Tachycardia [Fatal]
  - Electrocardiogram QRS complex prolonged [Fatal]
  - Coma [Fatal]
  - Depressed level of consciousness [Fatal]
  - Delirium [Fatal]
  - Seizure [Fatal]
  - Metabolic acidosis [Fatal]
  - Anion gap [Fatal]
  - Leukocytosis [Fatal]
  - Rhabdomyolysis [Fatal]
  - Drug ineffective [Fatal]
